FAERS Safety Report 5988100-6 (Version None)
Quarter: 2008Q4

REPORT INFORMATION
  Report Type: 
  Country: None (occurrence: None)
  Receive Date: 20081210
  Receipt Date: 20080414
  Transmission Date: 20090506
  Serious: No
  Sender: FDA-Public Use
  Company Number: US-AMGEN-KDL274457

PATIENT
  Sex: Female

DRUGS (4)
  1. ENBREL [Suspect]
     Indication: PSORIASIS
     Route: 058
     Dates: start: 20080301
  2. OLUX [Concomitant]
     Route: 061
  3. DOVONEX [Concomitant]
     Route: 061
  4. CLOBETASOL PROPIONATE [Concomitant]

REACTIONS (1)
  - PETECHIAE [None]
